FAERS Safety Report 4556378-1 (Version None)
Quarter: 2005Q1

REPORT INFORMATION
  Report Type: 
  Country: None (occurrence: None)
  Receive Date: 20050103
  Receipt Date: 20040922
  Transmission Date: 20050727
  Serious: Yes (Other)
  Sender: FDA-Public Use
  Company Number: 2004UW17764

PATIENT
  Age: 65 Year
  Sex: Female
  Weight: 61.6892 kg

DRUGS (5)
  1. CRESTOR [Suspect]
     Indication: BLOOD CHOLESTEROL INCREASED
     Dates: start: 20040810
  2. PREMARIN [Concomitant]
  3. PROVERA [Concomitant]
  4. PREVACID [Concomitant]
  5. MULTI-VITAMINS [Concomitant]

REACTIONS (3)
  - BURNING SENSATION [None]
  - CHEILITIS [None]
  - PARAESTHESIA [None]
